FAERS Safety Report 4724584-9 (Version None)
Quarter: 2005Q3

REPORT INFORMATION
  Report Type: 
  Country: None (occurrence: None)
  Receive Date: 20050719
  Receipt Date: 20050719
  Transmission Date: 20060218
  Serious: Yes (Other)
  Sender: FDA-Public Use
  Company Number: None

PATIENT
  Age: 72 Year
  Sex: Female
  Weight: 59.8748 kg

DRUGS (1)
  1. ZANFEL ZANFEL LABORATORIES  CHICAGO, IL. [Suspect]
     Indication: DERMATITIS CONTACT
     Dosage: 1 1/2 INCH TOPICAL Q6H X 2 DOSES
     Route: 061
     Dates: start: 20050711

REACTIONS (3)
  - APPLICATION SITE REACTION [None]
  - CONDITION AGGRAVATED [None]
  - DERMATITIS CONTACT [None]
